FAERS Safety Report 23376299 (Version 2)
Quarter: 2024Q1

REPORT INFORMATION
  Report Type: Spontaneous
  Country: RO (occurrence: RO)
  Receive Date: 20240108
  Receipt Date: 20240207
  Transmission Date: 20240410
  Serious: Yes (Life-Threatening, Other)
  Sender: FDA-Public Use
  Company Number: RO-CELLTRION INC.-2023RO025218

PATIENT

DRUGS (20)
  1. BEVACIZUMAB [Suspect]
     Active Substance: BEVACIZUMAB
     Indication: Colorectal adenocarcinoma
     Dosage: UNK
     Route: 042
  2. BEVACIZUMAB [Suspect]
     Active Substance: BEVACIZUMAB
     Indication: Acute myeloid leukaemia
     Dosage: UNK
     Route: 065
  3. BEVACIZUMAB [Suspect]
     Active Substance: BEVACIZUMAB
     Indication: Metastases to peritoneum
     Dosage: UNK
     Route: 065
  4. AZACITIDINE [Suspect]
     Active Substance: AZACITIDINE
     Indication: Colorectal adenocarcinoma
     Route: 065
  5. AZACITIDINE [Suspect]
     Active Substance: AZACITIDINE
     Indication: Acute myeloid leukaemia
  6. VENETOCLAX [Suspect]
     Active Substance: VENETOCLAX
     Indication: Colorectal adenocarcinoma
     Dosage: UNK
     Route: 065
  7. VENETOCLAX [Suspect]
     Active Substance: VENETOCLAX
     Indication: Acute myeloid leukaemia
     Dosage: 1 TREATMENT CYCLE
  8. VENETOCLAX [Suspect]
     Active Substance: VENETOCLAX
     Dosage: UNK
     Route: 065
  9. FLUOROURACIL\LEUCOVORIN [Suspect]
     Active Substance: FLUOROURACIL\LEUCOVORIN
     Indication: Colorectal adenocarcinoma
  10. FLUOROURACIL\LEUCOVORIN [Suspect]
     Active Substance: FLUOROURACIL\LEUCOVORIN
     Indication: Acute myeloid leukaemia
  11. AZACITIDINE [Suspect]
     Active Substance: AZACITIDINE
     Indication: Acute myeloid leukaemia
     Dosage: UNK
     Route: 065
  12. AZACITIDINE [Suspect]
     Active Substance: AZACITIDINE
     Dosage: 1 TREATMENT CYCLE
  13. AZACITIDINE [Suspect]
     Active Substance: AZACITIDINE
     Dosage: UNK
     Route: 065
  14. FLUOROURACIL [Suspect]
     Active Substance: FLUOROURACIL
     Indication: Colorectal adenocarcinoma
     Dosage: UNK
     Route: 065
  15. FLUOROURACIL [Suspect]
     Active Substance: FLUOROURACIL
     Indication: Colorectal adenocarcinoma
     Dosage: UNK
     Route: 065
  16. FLUOROURACIL [Suspect]
     Active Substance: FLUOROURACIL
     Indication: Metastases to peritoneum
  17. LEUCOVORIN CALCIUM [Suspect]
     Active Substance: LEUCOVORIN CALCIUM
     Indication: Colorectal adenocarcinoma
     Route: 065
  18. LEUCOVORIN [Suspect]
     Active Substance: LEUCOVORIN\LEUCOVORIN CALCIUM
     Indication: Colorectal adenocarcinoma
     Dosage: UNK
     Route: 065
  19. LEUCOVORIN [Suspect]
     Active Substance: LEUCOVORIN\LEUCOVORIN CALCIUM
     Indication: Colorectal adenocarcinoma
     Dosage: UNK
     Route: 065
  20. LEUCOVORIN [Suspect]
     Active Substance: LEUCOVORIN\LEUCOVORIN CALCIUM
     Indication: Metastases to peritoneum

REACTIONS (3)
  - Neutropenia [Unknown]
  - Haematotoxicity [Unknown]
  - Intentional product use issue [Unknown]
